FAERS Safety Report 12644603 (Version 2)
Quarter: 2016Q3

REPORT INFORMATION
  Report Type: Report from Study
  Country: US (occurrence: US)
  Receive Date: 20160811
  Receipt Date: 20160817
  Transmission Date: 20161109
  Serious: Yes (Hospitalization, Disabling, Other)
  Sender: FDA-Public Use
  Company Number: US-BAYER-2016-133447

PATIENT
  Age: 75 Year
  Sex: Male

DRUGS (5)
  1. STIVARGA [Suspect]
     Active Substance: REGORAFENIB
     Indication: COLON CANCER
  2. ENOXAPARIN [Concomitant]
     Active Substance: ENOXAPARIN
  3. ASPIRIN. [Concomitant]
     Active Substance: ASPIRIN
  4. AMIODARONE [Concomitant]
     Active Substance: AMIODARONE
  5. STIVARGA [Suspect]
     Active Substance: REGORAFENIB
     Indication: MALIGNANT PERITONEAL NEOPLASM
     Dosage: 160 MG, QD
     Route: 048
     Dates: start: 20160614, end: 20160805

REACTIONS (23)
  - Abdominal pain [None]
  - Skin exfoliation [None]
  - Oropharyngeal pain [Not Recovered/Not Resolved]
  - Productive cough [Not Recovered/Not Resolved]
  - Asthenia [None]
  - Skin ulcer [Recovered/Resolved]
  - Asthenia [None]
  - Balance disorder [None]
  - Asthenia [None]
  - Visual impairment [None]
  - Fatigue [None]
  - Mucosal inflammation [Unknown]
  - Lung neoplasm [None]
  - Urinary tract infection [None]
  - Diarrhoea [None]
  - Bedridden [None]
  - Activities of daily living impaired [None]
  - Blood pressure increased [None]
  - Oropharyngeal pain [None]
  - Nasopharyngitis [Recovering/Resolving]
  - Skin irritation [None]
  - Haemoptysis [Recovered/Resolved]
  - Pyrexia [None]

NARRATIVE: CASE EVENT DATE: 20160623
